FAERS Safety Report 25371198 (Version 1)
Quarter: 2025Q2

REPORT INFORMATION
  Report Type: Report from Study
  Country: ZA (occurrence: ZA)
  Receive Date: 20250529
  Receipt Date: 20250529
  Transmission Date: 20250717
  Serious: Yes (Hospitalization)
  Sender: ALEXION PHARMACEUTICALS
  Company Number: ZA-AstraZeneca-CH-00875702A

PATIENT
  Age: 62 Year

DRUGS (9)
  1. DAPAGLIFLOZIN [Suspect]
     Active Substance: DAPAGLIFLOZIN
     Indication: Diabetes mellitus
  2. CETIRIZINE HYDROCHLORIDE [Concomitant]
     Active Substance: CETIRIZINE HYDROCHLORIDE
     Indication: Allergy prophylaxis
  3. ATORVASTATIN [Concomitant]
     Active Substance: ATORVASTATIN
     Indication: Blood cholesterol
  4. NAPROXEN [Concomitant]
     Active Substance: NAPROXEN
     Indication: Pain
  5. PREGABALIN [Concomitant]
     Active Substance: PREGABALIN
     Indication: Epilepsy
  6. DORMONOCT [Concomitant]
     Active Substance: LOPRAZOLAM
     Indication: Insomnia
  7. Serdep [Concomitant]
     Indication: Psychiatric care
  8. LEVOTHYROXINE [Concomitant]
     Active Substance: LEVOTHYROXINE
     Indication: Hypothyroidism
  9. INSULIN DETEMIR [Concomitant]
     Active Substance: INSULIN DETEMIR
     Indication: Diabetes mellitus

REACTIONS (1)
  - Illness [Unknown]
